FAERS Safety Report 22059018 (Version 1)
Quarter: 2023Q1

REPORT INFORMATION
  Report Type: Spontaneous
  Country: US (occurrence: US)
  Receive Date: 20230303
  Receipt Date: 20230303
  Transmission Date: 20230417
  Serious: No
  Sender: FDA-Public Use
  Company Number: US-PFIZER INC-PV202300039621

PATIENT
  Age: 53 Year
  Sex: Female

DRUGS (2)
  1. XELJANZ XR [Interacting]
     Active Substance: TOFACITINIB CITRATE
  2. METHOTREXATE [Interacting]
     Active Substance: METHOTREXATE
     Dosage: 40 MG, WEEKLY
     Route: 048

REACTIONS (1)
  - Drug interaction [Unknown]
